FAERS Safety Report 8099206-2 (Version None)
Quarter: 2012Q1

REPORT INFORMATION
  Report Type: 
  Country: None (occurrence: None)
  Receive Date: 20120129
  Receipt Date: 20111011
  Transmission Date: 20120608
  Serious: Yes (Hospitalization, Other)
  Sender: FDA-Public Use
  Company Number: US-ABBOTT-11P-163-0861017-00

PATIENT
  Sex: Male
  Weight: 79.45 kg

DRUGS (6)
  1. HUMIRA [Suspect]
     Route: 058
     Dates: start: 20110701, end: 20110801
  2. HUMIRA [Suspect]
     Indication: JUVENILE ARTHRITIS
     Route: 058
     Dates: start: 20110601, end: 20110601
  3. PREDNISONE TAB [Concomitant]
     Indication: JUVENILE ARTHRITIS
     Dosage: DAILY; STARTING STEPPING DOWN DOSE
     Dates: start: 20110101
  4. PREDNISONE TAB [Concomitant]
     Indication: COLITIS ULCERATIVE
     Dosage: DAILY; CURRENT STEPPING DOWN DOSE
  5. HUMIRA [Suspect]
     Indication: COLITIS ULCERATIVE
     Route: 058
     Dates: start: 20110601, end: 20110601
  6. HUMIRA [Suspect]
     Route: 058
     Dates: start: 20110801, end: 20110901

REACTIONS (1)
  - COLITIS ULCERATIVE [None]
